FAERS Safety Report 5045169-3 (Version None)
Quarter: 2006Q2

REPORT INFORMATION
  Report Type: 
  Country: None (occurrence: None)
  Receive Date: 20060601
  Receipt Date: 20060410
  Transmission Date: 20061013
  Serious: No
  Sender: FDA-Public Use
  Company Number: 2006-BP-03525BP

PATIENT
  Age: 68 Year
  Sex: Female

DRUGS (8)
  1. SPIRIVA [Suspect]
     Indication: CHRONIC OBSTRUCTIVE PULMONARY DISEASE
     Dosage: 18 MCG (18 MCG), IH
     Route: 055
     Dates: end: 20050929
  2. ADVAIR (SERETIDE /01420901/) [Concomitant]
  3. EVISTA [Concomitant]
  4. CALTRATE [Concomitant]
  5. ECOTRIN (ACETYLSALICYLIC) [Concomitant]
  6. TRICOR [Concomitant]
  7. NEXIUM [Concomitant]
  8. INDERAL [Concomitant]

REACTIONS (2)
  - CHEST DISCOMFORT [None]
  - CHOKING [None]
